FAERS Safety Report 7334729-2 (Version None)
Quarter: 2011Q1

REPORT INFORMATION
  Report Type: 
  Country: None (occurrence: None)
  Receive Date: 20110307
  Receipt Date: 20110223
  Transmission Date: 20110831
  Serious: Yes (Other)
  Sender: FDA-Public Use
  Company Number: PHHY2011JP11426

PATIENT
  Age: 73 Year
  Sex: Male

DRUGS (9)
  1. TAKEPRON [Concomitant]
     Dosage: 15 MG, UNK
     Route: 048
  2. FENTOS [Interacting]
     Dosage: UNK
     Route: 061
     Dates: start: 20110131, end: 20110203
  3. NOVAMIN [Concomitant]
     Dosage: UNK
     Route: 048
  4. FLOMAX [Concomitant]
     Dosage: 200 MG, UNK
     Route: 048
  5. TEGRETOL [Suspect]
     Indication: GINGIVAL PAIN
     Dosage: 300 MG, QD
     Route: 048
     Dates: start: 20101110, end: 20110204
  6. BENZALIN [Concomitant]
     Dosage: UNK
     Route: 048
  7. OPSO [Concomitant]
     Dosage: 5 MG, UNK
     Route: 048
  8. URSO 250 [Concomitant]
     Dosage: UNK
     Route: 048
  9. CALONAL [Concomitant]
     Dosage: UNK
     Route: 048

REACTIONS (4)
  - DELIRIUM [None]
  - DRUG INTERACTION [None]
  - HALLUCINATION [None]
  - DRUG LEVEL INCREASED [None]
